FAERS Safety Report 16790698 (Version 6)
Quarter: 2020Q1

REPORT INFORMATION
  Report Type: Spontaneous
  Country: US (occurrence: US)
  Receive Date: 20190910
  Receipt Date: 20200228
  Transmission Date: 20200409
  Serious: Yes (Other)
  Sender: FDA-Public Use
  Company Number: US-PFIZER INC-2018423689

PATIENT
  Age: 73 Year
  Sex: Female

DRUGS (1)
  1. LYRICA [Suspect]
     Active Substance: PREGABALIN
     Indication: PAIN
     Dosage: 300 MG, 2X/DAY
     Route: 048

REACTIONS (8)
  - Withdrawal syndrome [Unknown]
  - Lower limb fracture [Unknown]
  - Intentional product use issue [Unknown]
  - Hypoaesthesia [Unknown]
  - Multiple fractures [Unknown]
  - Ankle fracture [Unknown]
  - Wrist fracture [Unknown]
  - Fall [Unknown]
